FAERS Safety Report 9971979 (Version 1)
Quarter: 2014Q1

REPORT INFORMATION
  Report Type: Report from Study
  Country: US (occurrence: US)
  Receive Date: 20140306
  Receipt Date: 20140306
  Transmission Date: 20141002
  Serious: No
  Sender: FDA-Public Use
  Company Number: US-ABBVIE-13P-163-1150198-00

PATIENT
  Age: 53 Year
  Sex: Female
  Weight: 70.37 kg

DRUGS (14)
  1. HUMIRA [Suspect]
     Indication: PSORIASIS
     Dates: start: 2007
  2. HUMIRA [Suspect]
     Indication: PUSTULAR PSORIASIS
  3. METHOTREXATE [Concomitant]
     Indication: PSORIASIS
  4. LAMICTAL [Concomitant]
     Indication: MOOD SWINGS
  5. ABILIFY [Concomitant]
     Indication: MOOD SWINGS
  6. LEXAPRO [Concomitant]
     Indication: DEPRESSION
  7. AMITRIPTYLINE [Concomitant]
     Indication: PAIN
  8. ELMIRON [Concomitant]
     Indication: CYSTITIS INTERSTITIAL
  9. METOPROLOL [Concomitant]
     Indication: TACHYCARDIA
  10. ZANAFLEX [Concomitant]
     Indication: PAIN
  11. FOLIC ACID [Concomitant]
     Indication: PRODUCT USED FOR UNKNOWN INDICATION
     Dosage: TAKEN WITH METHOTREXATE
  12. SKELAXIN [Concomitant]
     Indication: FIBROMYALGIA
  13. TOPOMAX [Concomitant]
  14. VALIUM [Concomitant]

REACTIONS (6)
  - Impetigo [Unknown]
  - Pustular psoriasis [Not Recovered/Not Resolved]
  - Psoriasis [Not Recovered/Not Resolved]
  - Drug dose omission [Unknown]
  - Cystitis interstitial [Not Recovered/Not Resolved]
  - Vertigo [Not Recovered/Not Resolved]
